FAERS Safety Report 8349065-5 (Version None)
Quarter: 2012Q2

REPORT INFORMATION
  Report Type: 
  Country: None (occurrence: None)
  Receive Date: 20120508
  Receipt Date: 20120423
  Transmission Date: 20120825
  Serious: Yes (Death, Life-Threatening, Hospitalization)
  Sender: FDA-Public Use
  Company Number: EU-2011-10281

PATIENT
  Age: 68 Year
  Sex: Male
  Weight: 59.013 kg

DRUGS (18)
  1. CITALOPRAM HYDROBROMIDE [Concomitant]
  2. RAMIPRIL [Concomitant]
  3. TORSEMIDE [Concomitant]
  4. WARFARIN SODIUM [Concomitant]
  5. ATORVASTATIN [Concomitant]
  6. SAMSCA [Suspect]
     Indication: INAPPROPRIATE ANTIDIURETIC HORMONE SECRETION
     Dosage: 15 MG MILLIGRAM(S), DAILY DOSE, ORAL
     Route: 048
     Dates: start: 20111127, end: 20111202
  7. LORAZEPAM [Concomitant]
  8. ESPIRONOLACTON (SPIRONOLACTONE) [Concomitant]
  9. HYDROCORTONE [Concomitant]
  10. SULPIRIDE (SULPIRIDE) [Concomitant]
  11. ACETAMINOPHEN [Concomitant]
  12. CLOPIDEGREL [Concomitant]
  13. CARVEDILOL [Concomitant]
  14. ASPIRIN [Concomitant]
  15. CIPROFLOXACIN [Concomitant]
  16. AMIODARONE HCL [Concomitant]
  17. OMEPRAZOLE [Concomitant]
  18. TAMSULOSIN HCL [Concomitant]

REACTIONS (12)
  - LEUKOCYTOSIS [None]
  - PLEURAL EFFUSION [None]
  - URINARY TRACT INFECTION [None]
  - LIVER DISORDER [None]
  - CYSTITIS [None]
  - ASPIRATION [None]
  - DYSPNOEA [None]
  - HEPATIC CONGESTION [None]
  - MALLORY-WEISS SYNDROME [None]
  - CARDIAC FAILURE ACUTE [None]
  - PYREXIA [None]
  - RESPIRATORY FAILURE [None]
